FAERS Safety Report 6145513-X (Version None)
Quarter: 2009Q2

REPORT INFORMATION
  Report Type: 
  Country: None (occurrence: None)
  Receive Date: 20090406
  Receipt Date: 20051214
  Transmission Date: 20091009
  Serious: Yes (Hospitalization)
  Sender: FDA-Public Use
  Company Number: US-PFIZER INC-2004225931US

PATIENT
  Sex: Male
  Weight: 57.15 kg

DRUGS (13)
  1. CELECOXIB [Suspect]
     Indication: NEOPLASM PROPHYLAXIS
     Dosage: 400 MG, 2X/DAY
     Route: 048
     Dates: start: 20010705, end: 20040712
  2. PRAVACHOL [Concomitant]
     Route: 065
     Dates: start: 19940101
  3. VITAMIN B COMPLEX CAP [Concomitant]
     Route: 065
     Dates: start: 19900101
  4. CALCIUM [Concomitant]
     Route: 065
     Dates: start: 19900101
  5. VITAMIN E [Concomitant]
     Route: 065
     Dates: start: 19900101
  6. ASCORBIC ACID [Concomitant]
     Route: 065
     Dates: start: 19900101
  7. NEURONTIN [Concomitant]
     Route: 065
     Dates: start: 20010101
  8. VASOTEC [Concomitant]
     Route: 065
     Dates: start: 19900101
  9. ATENOLOL [Concomitant]
     Route: 065
     Dates: start: 20030929
  10. NORVASC [Concomitant]
     Route: 065
     Dates: start: 20031231
  11. PENICILLIN G [Concomitant]
     Route: 065
     Dates: start: 20030313, end: 20030327
  12. NIFEDIPINE [Concomitant]
     Route: 065
     Dates: start: 20030919, end: 20031230
  13. VERAPAMIL [Concomitant]
     Route: 065
     Dates: start: 19990101, end: 20030929

REACTIONS (1)
  - GOITRE [None]
